FAERS Safety Report 5034986-1 (Version None)
Quarter: 2006Q2

REPORT INFORMATION
  Report Type: 
  Country: None (occurrence: None)
  Receive Date: 20060627
  Receipt Date: 20060420
  Transmission Date: 20061013
  Serious: Yes (Hospitalization)
  Sender: FDA-Public Use
  Company Number: 2006UW07106

PATIENT
  Age: 87 Year
  Sex: Female
  Weight: 60 kg

DRUGS (10)
  1. TOPROL-XL [Suspect]
     Route: 048
     Dates: start: 20040401, end: 20040401
  2. DYAZIDE [Suspect]
     Dates: start: 20040401, end: 20040401
  3. XOPENEX [Suspect]
     Indication: LUNG DISORDER
     Dosage: 0.63 MG/3ML
     Route: 055
     Dates: start: 20040406, end: 20040409
  4. XOPENEX [Suspect]
     Dosage: 0.63/MG/3ML
     Route: 055
     Dates: start: 20040409, end: 20040413
  5. XOPENEX [Suspect]
     Dosage: 0.63 MG/3ML
     Route: 055
     Dates: start: 20040413, end: 20040420
  6. BLOOD THINNER [Concomitant]
  7. ARICEPT [Concomitant]
  8. ICAPS [Concomitant]
  9. FLUID TABLET [Concomitant]
  10. SODIUM TABLET [Concomitant]

REACTIONS (16)
  - ABDOMINAL PAIN UPPER [None]
  - ASTHENIA [None]
  - CHEST PAIN [None]
  - COUGH [None]
  - DIABETES MELLITUS [None]
  - DIARRHOEA [None]
  - FATIGUE [None]
  - FEELING ABNORMAL [None]
  - HEADACHE [None]
  - INFECTION [None]
  - NAUSEA [None]
  - NERVOUSNESS [None]
  - NON-CARDIAC CHEST PAIN [None]
  - PULMONARY CONGESTION [None]
  - PULMONARY EMBOLISM [None]
  - PYREXIA [None]
